FAERS Safety Report 16780485 (Version 7)
Quarter: 2020Q4

REPORT INFORMATION
  Report Type: Report from Study
  Country: FR (occurrence: FR)
  Receive Date: 20190906
  Receipt Date: 20201223
  Transmission Date: 20210113
  Serious: Yes (Hospitalization, Other)
  Sender: FDA-Public Use
  Company Number: FR-MYLANLABS-2019M1083131

PATIENT
  Age: 93 Year
  Sex: Male
  Weight: 85 kg

DRUGS (11)
  1. POTASSIUM [Concomitant]
     Active Substance: POTASSIUM
     Indication: HYPOKALAEMIA
     Dosage: 1800 MILLIGRAM, QD (1800 MILLIGRAM, DAILY)
     Route: 048
  2. ENZALUTAMIDE [Concomitant]
     Active Substance: ENZALUTAMIDE
     Indication: HORMONE THERAPY
     Dosage: 40 MILLIGRAM, QD
     Route: 048
  3. ENOXAPARIN [Concomitant]
     Active Substance: ENOXAPARIN
     Indication: PRODUCT USED FOR UNKNOWN INDICATION
     Dosage: UNK
     Route: 048
     Dates: start: 20190228, end: 20190313
  4. RAMIPRIL. [Suspect]
     Active Substance: RAMIPRIL
     Indication: PRODUCT USED FOR UNKNOWN INDICATION
     Dosage: 10 MILLIGRAM, QD (10 MILLIGRAM, DAILY)
     Route: 048
  5. APIXABAN [Suspect]
     Active Substance: APIXABAN
     Indication: PRODUCT USED FOR UNKNOWN INDICATION
     Dosage: 10 MILLIGRAM, QD
     Route: 048
     Dates: start: 20181212, end: 20190225
  6. ENOXAPARIN [Concomitant]
     Active Substance: ENOXAPARIN
     Dosage: UNK
     Route: 048
     Dates: start: 20190316, end: 20190321
  7. CONTRAMAL [Concomitant]
     Active Substance: TRAMADOL HYDROCHLORIDE
     Indication: PAIN
     Dosage: 200 MILLIGRAM, QD
     Route: 048
  8. ACETYLSALICYLIC ACID [Suspect]
     Active Substance: ASPIRIN
     Indication: PRODUCT USED FOR UNKNOWN INDICATION
     Dosage: 75 MILLIGRAM, QD (75 MILLIGRAM, DAILY)
     Route: 048
  9. FUROSEMIDE. [Concomitant]
     Active Substance: FUROSEMIDE
     Indication: DIURETIC THERAPY
     Dosage: 60 MILLIGRAM, QD (60 MILLIGRAM, DAILY)
     Route: 048
  10. ENOXAPARIN [Concomitant]
     Active Substance: ENOXAPARIN
     Dosage: UNK
     Route: 048
     Dates: start: 20190322, end: 20190401
  11. APIXABAN [Suspect]
     Active Substance: APIXABAN
     Dosage: 10 MILLIGRAM, QD
     Route: 048
     Dates: start: 20190314, end: 20190315

REACTIONS (3)
  - Inguinal hernia [Recovered/Resolved]
  - Post procedural haematoma [Recovered/Resolved]
  - Incision site haematoma [Recovered/Resolved]

NARRATIVE: CASE EVENT DATE: 20190315
